FAERS Safety Report 25028528 (Version 1)
Quarter: 2025Q1

REPORT INFORMATION
  Report Type: Spontaneous
  Country: SE (occurrence: SE)
  Receive Date: 20250302
  Receipt Date: 20250302
  Transmission Date: 20250408
  Serious: Yes (Hospitalization)
  Sender: ROCHE
  Company Number: None

PATIENT
  Age: 73 Year
  Sex: Female

DRUGS (1)
  1. TOCILIZUMAB [Suspect]
     Active Substance: TOCILIZUMAB
     Indication: Psoriatic arthropathy
     Route: 058
     Dates: start: 20150521, end: 20240617

REACTIONS (1)
  - Arthritis bacterial [Recovered/Resolved]

NARRATIVE: CASE EVENT DATE: 20240515
